FAERS Safety Report 5272523-7 (Version None)
Quarter: 2007Q1

REPORT INFORMATION
  Report Type: 
  Country: None (occurrence: None)
  Receive Date: 20070322
  Receipt Date: 20060913
  Transmission Date: 20070707
  Serious: Yes (Other)
  Sender: FDA-Public Use
  Company Number: US-BRISTOL-MYERS SQUIBB COMPANY-13521679

PATIENT

DRUGS (1)
  1. KENALOG [Suspect]

REACTIONS (1)
  - INJECTION SITE INFECTION [None]
